FAERS Safety Report 20613401 (Version 1)
Quarter: 2022Q1

REPORT INFORMATION
  Report Type: Spontaneous
  Country: DE (occurrence: DE)
  Receive Date: 20220319
  Receipt Date: 20220319
  Transmission Date: 20220423
  Serious: Yes (Other)
  Sender: FDA-Public Use
  Company Number: DE-HETERO-HET2022DE00524

PATIENT
  Age: 57 Year
  Sex: Female
  Weight: 100 kg

DRUGS (3)
  1. DULOXETINE [Suspect]
     Active Substance: DULOXETINE
     Indication: Burnout syndrome
     Dosage: 1 DOSAGE FORM, Q.A.M.
     Route: 048
     Dates: start: 20211216
  2. DULOXETINE [Suspect]
     Active Substance: DULOXETINE
     Indication: Tinnitus
  3. L-THYROXIN                         /00068001/ [Concomitant]
     Indication: Autoimmune thyroiditis
     Dosage: 100 MILLIGRAM
     Route: 065

REACTIONS (2)
  - Off label use [Unknown]
  - Diarrhoea [Not Recovered/Not Resolved]

NARRATIVE: CASE EVENT DATE: 20211216
